FAERS Safety Report 6572223-7 (Version None)
Quarter: 2010Q1

REPORT INFORMATION
  Report Type: 
  Country: None (occurrence: None)
  Receive Date: 20100205
  Receipt Date: 20100129
  Transmission Date: 20100710
  Serious: Yes (Other)
  Sender: FDA-Public Use
  Company Number: PHEH2010US01792

PATIENT
  Sex: Female

DRUGS (10)
  1. MIACALCIN [Suspect]
     Indication: OSTEOPOROSIS PROPHYLAXIS
     Dosage: UNK
     Dates: start: 20000101, end: 20060101
  2. FOSAMAX [Suspect]
  3. ZETIA [Suspect]
     Dosage: UNK
  4. LASIX [Concomitant]
  5. VITAMIN D [Concomitant]
  6. ALDACTONE [Concomitant]
  7. MINOCYCLINE HCL [Concomitant]
  8. ANTIHYPERTENSIVES [Concomitant]
  9. CALCIUM W/VITAMIN D NOS [Concomitant]
  10. EVISTA [Concomitant]

REACTIONS (11)
  - BONE DENSITY DECREASED [None]
  - CHOLECYSTECTOMY [None]
  - CHOLELITHIASIS [None]
  - DRUG INEFFECTIVE [None]
  - GOUTY ARTHRITIS [None]
  - JOINT SWELLING [None]
  - KNEE OPERATION [None]
  - MUSCLE SPASMS [None]
  - OESOPHAGEAL ULCER [None]
  - STRESS [None]
  - THYROID OPERATION [None]
